FAERS Safety Report 13518995 (Version 2)
Quarter: 2017Q2

REPORT INFORMATION
  Report Type: Spontaneous
  Country: BR (occurrence: BR)
  Receive Date: 20170505
  Receipt Date: 20170515
  Transmission Date: 20170830
  Serious: Yes (Other)
  Sender: FDA-Public Use
  Company Number: BR-FERRINGPH-2017FE02027

PATIENT

DRUGS (5)
  1. DDAVP [Suspect]
     Active Substance: DESMOPRESSIN ACETATE
     Indication: DIABETES INSIPIDUS
     Dosage: UNKNOWN
  2. OMEPRAZOLE. [Concomitant]
     Active Substance: OMEPRAZOLE
     Indication: OESOPHAGITIS
     Dosage: UNK
     Route: 048
     Dates: start: 201607
  3. LEVOTHYROXINE. [Concomitant]
     Active Substance: LEVOTHYROXINE
     Indication: HYPOTHYROIDISM
     Dosage: UNK
     Route: 048
     Dates: start: 2010
  4. DDAVP [Suspect]
     Active Substance: DESMOPRESSIN ACETATE
     Indication: DIABETES INSIPIDUS
     Dosage: 0.1 MG IN THE MORNING, 0.1 MG AT NIGHT
     Route: 048
  5. DDAVP [Suspect]
     Active Substance: DESMOPRESSIN ACETATE
     Indication: DIABETES INSIPIDUS
     Route: 045

REACTIONS (3)
  - Hyponatraemia [Recovered/Resolved]
  - Pituitary tumour benign [Unknown]
  - Administration site discomfort [Recovered/Resolved]

NARRATIVE: CASE EVENT DATE: 2012
